FAERS Safety Report 8864289 (Version 1)
Quarter: 2012Q4

REPORT INFORMATION
  Report Type: 
  Country: US (occurrence: US)
  Receive Date: 20121024
  Receipt Date: 20121024
  Transmission Date: 20130627
  Serious: No
  Sender: FDA-Public Use
  Company Number: US-AMGEN-USASP2011066696

PATIENT
  Age: 45 Year
  Sex: Female
  Weight: 58 kg

DRUGS (8)
  1. ENBREL [Suspect]
     Indication: PRODUCT USED FOR UNKNOWN INDICATION
     Dosage: 50 mg, qwk
     Route: 058
  2. NEURONTIN [Concomitant]
     Dosage: 100 mg, UNK
  3. PRAVASTATIN [Concomitant]
     Dosage: 10 mg, UNK
  4. PROZAC [Concomitant]
     Dosage: 10 mg, UNK
  5. MULTIVITAMINS [Concomitant]
  6. VITAMIN D [Concomitant]
     Dosage: 400 IU, UNK
  7. EXCEDRIN [Concomitant]
  8. PERCOCET [Concomitant]

REACTIONS (1)
  - Oropharyngeal pain [Unknown]
